FAERS Safety Report 9779407 (Version 2)
Quarter: 2013Q4

REPORT INFORMATION
  Report Type: Spontaneous
  Country: JP (occurrence: JP)
  Receive Date: 20131223
  Receipt Date: 20131223
  Transmission Date: 20140711
  Serious: Yes (Other)
  Sender: FDA-Public Use
  Company Number: JP-GILEAD-2013-0086055

PATIENT
  Sex: Female

DRUGS (5)
  1. HEPSERA [Suspect]
     Indication: HEPATIC CIRRHOSIS
     Dosage: 10 MG, Q2WK
     Route: 048
  2. HEPSERA [Suspect]
     Dosage: 10 MG, QD
     Route: 048
     Dates: start: 2005
  3. HEPSERA [Suspect]
     Dosage: 10 MG, QOD
     Route: 048
  4. ZEFIX /01221401/ [Suspect]
     Indication: HEPATIC CIRRHOSIS
     Route: 048
  5. PHOSPHATE                          /01053101/ [Concomitant]
     Route: 048

REACTIONS (9)
  - Ulna fracture [Unknown]
  - Osteoporosis [Unknown]
  - Drug tolerance [Unknown]
  - Back pain [Unknown]
  - Back pain [Unknown]
  - Intervertebral disc protrusion [Unknown]
  - Osteomalacia [Unknown]
  - Blood phosphorus decreased [Unknown]
  - Fanconi syndrome acquired [Unknown]
